FAERS Safety Report 7860241-8 (Version None)
Quarter: 2011Q4

REPORT INFORMATION
  Report Type: 
  Country: None (occurrence: None)
  Receive Date: 20111027
  Receipt Date: 20111019
  Transmission Date: 20120403
  Serious: Yes (Hospitalization, Other)
  Sender: FDA-Public Use
  Company Number: MX-SANOFI-AVENTIS-2011SA069253

PATIENT
  Age: 38 Year
  Sex: Male

DRUGS (7)
  1. LOSARTAN POTASSIUM [Concomitant]
     Route: 048
     Dates: start: 19930101
  2. METFORMIN HCL [Concomitant]
     Indication: TYPE 2 DIABETES MELLITUS
     Route: 048
     Dates: start: 20030101
  3. LANTUS [Suspect]
     Indication: TYPE 2 DIABETES MELLITUS
     Route: 058
     Dates: start: 20030101
  4. ASPIRIN [Concomitant]
     Route: 048
  5. GLYBURIDE [Concomitant]
     Indication: TYPE 2 DIABETES MELLITUS
     Route: 048
     Dates: start: 20030101
  6. METOPROLOL TARTRATE [Concomitant]
     Route: 048
     Dates: start: 19930101
  7. ENALAPRIL MALEATE [Concomitant]
     Route: 048
     Dates: start: 19930101

REACTIONS (10)
  - RETINAL DETACHMENT [None]
  - BLINDNESS UNILATERAL [None]
  - PULMONARY OEDEMA [None]
  - WEIGHT DECREASED [None]
  - HYPOGLYCAEMIA [None]
  - HYPERHIDROSIS [None]
  - TREMOR [None]
  - DIARRHOEA [None]
  - DECREASED APPETITE [None]
  - ASTHENIA [None]
